FAERS Safety Report 20817343 (Version 1)
Quarter: 2022Q2

REPORT INFORMATION
  Report Type: Spontaneous
  Country: US (occurrence: US)
  Receive Date: 20220512
  Receipt Date: 20220512
  Transmission Date: 20220721
  Serious: No
  Sender: FDA-Public Use
  Company Number: US-AMGEN-USASP2022080983

PATIENT
  Age: 1 Year

DRUGS (1)
  1. CORLANOR [Suspect]
     Active Substance: IVABRADINE HYDROCHLORIDE
     Indication: Product used for unknown indication
     Dosage: 0.4 EQUIVALENT TO ABOUT 0.8 PER DAY
     Route: 065

REACTIONS (1)
  - Intentional underdose [Unknown]
